FAERS Safety Report 9890494 (Version 1)
Quarter: 2014Q1

REPORT INFORMATION
  Report Type: Spontaneous
  Country: US (occurrence: None)
  Receive Date: 20140211
  Receipt Date: 20140211
  Transmission Date: 20141002
  Serious: Yes (Other)
  Sender: FDA-Public Use
  Company Number: None

PATIENT
  Age: 83 Year
  Sex: Male

DRUGS (7)
  1. EYLEA [Suspect]
     Indication: AGE-RELATED MACULAR DEGENERATION
     Dosage: 2MG/0.05ML
     Route: 047
     Dates: start: 20140130, end: 20140130
  2. TIMOLOL [Concomitant]
  3. XALATAN [Concomitant]
  4. ALENDRONATE [Concomitant]
  5. ARICEPT [Concomitant]
  6. LOSARTAN [Concomitant]
  7. NAMENDA [Concomitant]

REACTIONS (2)
  - Anterior chamber inflammation [None]
  - Vitritis [None]
